FAERS Safety Report 5443537-9 (Version None)
Quarter: 2007Q3

REPORT INFORMATION
  Report Type: 
  Country: None (occurrence: None)
  Receive Date: 20070831
  Receipt Date: 20070821
  Transmission Date: 20080115
  Serious: Yes (Other)
  Sender: FDA-Public Use
  Company Number: 237065K07USA

PATIENT
  Age: 57 Year
  Sex: Female
  Weight: 47.1741 kg

DRUGS (2)
  1. REBIF [Suspect]
     Indication: MULTIPLE SCLEROSIS
     Dosage: 44 MCG, 3 IN 1 WEEKS, SUBCUTANEOUS
     Route: 058
     Dates: start: 20040221
  2. FORTEO [Concomitant]

REACTIONS (1)
  - BREAST CANCER RECURRENT [None]
